FAERS Safety Report 8002564-8 (Version None)
Quarter: 2011Q4

REPORT INFORMATION
  Report Type: 
  Country: None (occurrence: None)
  Receive Date: 20111222
  Receipt Date: 20111219
  Transmission Date: 20120403
  Serious: Yes (Congenital Anomaly, Other)
  Sender: FDA-Public Use
  Company Number: US-PFIZER INC-2010109646

PATIENT
  Sex: Female
  Weight: 3.3 kg

DRUGS (5)
  1. ZOLOFT [Suspect]
     Dosage: UNK
     Route: 064
  2. ACETAMINOPHEN/DEXTROMETHORPHAN HBR/PHENYLEPHRINE HCL [Concomitant]
     Route: 064
  3. ACETAMINOPHEN [Concomitant]
     Route: 064
  4. BENZONATATE [Concomitant]
     Indication: COUGH
     Dosage: 100 MG, UNK
     Route: 064
  5. MULTI-VITAMINS [Concomitant]
     Route: 064

REACTIONS (8)
  - GENITAL LABIAL ADHESIONS [None]
  - ORAL CANDIDIASIS [None]
  - CONGENITAL NAEVUS [None]
  - FOETAL EXPOSURE DURING PREGNANCY [None]
  - DANDRUFF [None]
  - PULMONARY VALVE STENOSIS [None]
  - DERMATITIS ATOPIC [None]
  - UPPER RESPIRATORY TRACT INFECTION [None]
